FAERS Safety Report 9559569 (Version 2)
Quarter: 2013Q4

REPORT INFORMATION
  Report Type: Spontaneous
  Country: US (occurrence: None)
  Receive Date: 20130617
  Receipt Date: 20131114
  Transmission Date: 20140711
  Serious: Yes (Hospitalization)
  Sender: FDA-Public Use
  Company Number: EUS-2013-00155

PATIENT
  Age: 6 Year
  Sex: Male
  Weight: 27.7 kg

DRUGS (2)
  1. ERWINAZE [Suspect]
     Indication: ACUTE LYMPHOCYTIC LEUKAEMIA
     Dosage: GIVEN ON 26 AND 29 MARCH 2013 (22750 IU)
     Route: 030
     Dates: start: 20130326, end: 20130329
  2. VINCRISTINE (VINCRISTINE) (UNKNOWN) [Concomitant]

REACTIONS (2)
  - Expired drug administered [None]
  - Platelet disorder [None]
